FAERS Safety Report 10602660 (Version 9)
Quarter: 2015Q4

REPORT INFORMATION
  Report Type: Spontaneous
  Country: DE (occurrence: DE)
  Receive Date: 20141124
  Receipt Date: 20151006
  Transmission Date: 20160304
  Serious: Yes (Hospitalization, Other)
  Sender: FDA-Public Use
  Company Number: DE-PFIZER INC-2014282826

PATIENT
  Age: 22 Year
  Sex: Female
  Weight: 42 kg

DRUGS (9)
  1. DEPO-CLINOVIR [Suspect]
     Active Substance: MEDROXYPROGESTERONE ACETATE
     Indication: CONTRACEPTION
     Dosage: 1 DF, SINGLE, SYRINGE
     Route: 030
     Dates: start: 20140402, end: 20140402
  2. MONO EMBOLEX [Concomitant]
     Active Substance: CERTOPARIN SODIUM
     Indication: THROMBOSIS PROPHYLAXIS
     Dosage: 8X
     Route: 058
     Dates: start: 20150324, end: 20150409
  3. PARTUSISTEN [Concomitant]
     Active Substance: FENOTEROL
     Indication: CERVIX DISORDER
  4. CEFAZOLIN [Concomitant]
     Active Substance: CEFAZOLIN
     Indication: ANTIBIOTIC THERAPY
     Dosage: UNK
     Route: 042
     Dates: start: 20150324, end: 20150325
  5. PARTUSISTEN [Concomitant]
     Active Substance: FENOTEROL
     Indication: TOCOLYSIS
     Dosage: UNK
     Route: 042
     Dates: start: 20150324
  6. DEPO-CLINOVIR [Suspect]
     Active Substance: MEDROXYPROGESTERONE ACETATE
     Dosage: 1 DF, SINGLE, SYRINGE
     Route: 030
     Dates: start: 20140618, end: 20140618
  7. PARTUSISTEN [Concomitant]
     Active Substance: FENOTEROL
     Indication: PREMATURE LABOUR
     Dosage: UNK
  8. DEPO-CLINOVIR [Suspect]
     Active Substance: MEDROXYPROGESTERONE ACETATE
     Dosage: 1 DF, SINGLE, SYRINGE
     Route: 030
     Dates: start: 20140909, end: 20140909
  9. CELESTAN [Concomitant]
     Active Substance: BETAMETHASONE
     Indication: PROPHYLAXIS
     Dosage: 12 MG, TWICE
     Route: 030
     Dates: start: 20150324, end: 20150325

REACTIONS (5)
  - Cervical incompetence [Unknown]
  - Amenorrhoea [Unknown]
  - Drug ineffective [Unknown]
  - Ovarian cyst [Unknown]
  - Unintended pregnancy [Unknown]

NARRATIVE: CASE EVENT DATE: 201404
